FAERS Safety Report 9263590 (Version 5)
Quarter: 2013Q4

REPORT INFORMATION
  Report Type: Spontaneous
  Country: US (occurrence: US)
  Receive Date: 20130430
  Receipt Date: 20131018
  Transmission Date: 20140711
  Serious: Yes (Life-Threatening, Hospitalization, Other)
  Sender: FDA-Public Use
  Company Number: US-009507513-1304USA016964

PATIENT
  Sex: Male
  Weight: 90.7 kg

DRUGS (10)
  1. JANUVIA [Suspect]
     Indication: TYPE 2 DIABETES MELLITUS
     Dosage: 100 MG, QD
     Route: 048
     Dates: start: 20081104, end: 20101123
  2. ZESTORETIC [Concomitant]
     Indication: HYPERTENSION
  3. METOPROLOL [Concomitant]
     Indication: HYPERTENSION
  4. OMEGA-3 MARINE TRIGLYCERIDES [Concomitant]
     Indication: LIPIDS
     Dosage: UNK
     Dates: start: 20100317
  5. ZETIA [Concomitant]
     Indication: LIPIDS
     Dosage: 10 MG, QD
     Route: 048
     Dates: start: 20100317
  6. ACTOS [Concomitant]
     Indication: DIABETES MELLITUS
     Dosage: 45 MG, QD
  7. GLIPIZIDE [Concomitant]
     Indication: DIABETES MELLITUS
     Dosage: 10 MG, BID
  8. LIPITOR [Concomitant]
     Indication: HYPERLIPIDAEMIA
     Dosage: 20-80 MG, QD
  9. PRILOSEC [Concomitant]
     Indication: GASTROOESOPHAGEAL REFLUX DISEASE
     Dosage: UNK
  10. INSULIN DETEMIR [Concomitant]
     Indication: DIABETES MELLITUS
     Dosage: UNK
     Route: 058
     Dates: start: 20101019

REACTIONS (49)
  - Adenocarcinoma pancreas [Unknown]
  - Pancreaticoduodenectomy [Unknown]
  - Lymphadenectomy [Unknown]
  - Cholecystectomy [Recovered/Resolved]
  - Aortic aneurysm repair [Unknown]
  - Metastatic lymphoma [Unknown]
  - Pancreatic carcinoma recurrent [Unknown]
  - Pancreatitis [Unknown]
  - Weight decreased [Unknown]
  - Cholelithiasis [Unknown]
  - Emphysema [Unknown]
  - Hepatobiliary neoplasm [Unknown]
  - Pancreatic disorder [Unknown]
  - Pancreatic calcification [Unknown]
  - Mass [Unknown]
  - Haemorrhagic anaemia [Unknown]
  - Thrombosis prophylaxis [Unknown]
  - Weight decreased [Unknown]
  - Dyspnoea exertional [Unknown]
  - Polyp [Unknown]
  - Hypokalaemia [Unknown]
  - Jaundice [Unknown]
  - Abdominal hernia [Unknown]
  - Carcinoembryonic antigen increased [Unknown]
  - Hand fracture [Unknown]
  - Finger repair operation [Unknown]
  - Carcinoembryonic antigen increased [Unknown]
  - Polyp [Unknown]
  - Insomnia [Unknown]
  - Anxiety disorder [Unknown]
  - Blood glucose decreased [Unknown]
  - Fatigue [Unknown]
  - Inflammation [Unknown]
  - Vitamin D deficiency [Unknown]
  - Blood pressure decreased [Unknown]
  - Diabetes mellitus inadequate control [Unknown]
  - Stress [Unknown]
  - Diarrhoea [Unknown]
  - Rash [Unknown]
  - Drug ineffective [Unknown]
  - Abdominal pain lower [Unknown]
  - Abdominal discomfort [Unknown]
  - Rash [Recovering/Resolving]
  - Diarrhoea [Unknown]
  - Nausea [Recovered/Resolved]
  - Vomiting [Unknown]
  - Constipation [Unknown]
  - Arthralgia [Unknown]
  - Back pain [Unknown]
